FAERS Safety Report 14828418 (Version 1)
Quarter: 2018Q2

REPORT INFORMATION
  Report Type: Spontaneous
  Country: US (occurrence: US)
  Receive Date: 20180430
  Receipt Date: 20180430
  Transmission Date: 20180711
  Serious: No
  Sender: FDA-Public Use
  Company Number: US-SUNOVION-2018SUN001559

PATIENT
  Sex: Male

DRUGS (5)
  1. APTIOM [Suspect]
     Active Substance: ESLICARBAZEPINE ACETATE
     Dosage: 1200 MG, HS
     Route: 048
     Dates: start: 20180416
  2. APTIOM [Suspect]
     Active Substance: ESLICARBAZEPINE ACETATE
     Dosage: 1600 MG, HS
     Route: 048
     Dates: end: 20180415
  3. KEPPRA [Concomitant]
     Active Substance: LEVETIRACETAM
     Dosage: 3000 MG, QD
     Route: 048
  4. APTIOM [Suspect]
     Active Substance: ESLICARBAZEPINE ACETATE
     Indication: SEIZURE
     Dosage: 1200 MG, HS
     Route: 048
  5. LAMICTAL [Concomitant]
     Active Substance: LAMOTRIGINE
     Dosage: 400 MG, HS
     Route: 048

REACTIONS (2)
  - Muscle spasms [Unknown]
  - Tremor [Unknown]
